FAERS Safety Report 4708971-0 (Version None)
Quarter: 2005Q3

REPORT INFORMATION
  Report Type: 
  Country: None (occurrence: None)
  Receive Date: 20050705
  Receipt Date: 20050623
  Transmission Date: 20060218
  Serious: Yes (Hospitalization, Other)
  Sender: FDA-Public Use
  Company Number: 2005092462

PATIENT
  Age: 54 Year
  Sex: Male

DRUGS (5)
  1. LIPITOR [Suspect]
     Indication: CORONARY ARTERY DISEASE
     Dosage: EVERY DAY, ORAL
     Route: 048
     Dates: start: 20050621
  2. LOPRESSOR [Concomitant]
  3. ZOCOR [Concomitant]
  4. SALOSPIR (ACETYLSALICYLIC ACID) [Concomitant]
  5. TRILEPTAL     NOVARTIS    (OXCARBAZEPINE) [Concomitant]

REACTIONS (1)
  - GRAND MAL CONVULSION [None]
